FAERS Safety Report 4966850-8 (Version None)
Quarter: 2006Q2

REPORT INFORMATION
  Report Type: 
  Country: None (occurrence: None)
  Receive Date: 20060407
  Receipt Date: 20041012
  Transmission Date: 20061013
  Serious: Yes (Hospitalization, Other)
  Sender: FDA-Public Use
  Company Number: US-MERCK-0410USA01961

PATIENT
  Age: 67 Year
  Sex: Male
  Weight: 81 kg

DRUGS (11)
  1. VIOXX [Suspect]
     Indication: RHEUMATOID ARTHRITIS
     Route: 048
     Dates: start: 20000809
  2. VIOXX [Suspect]
     Route: 048
     Dates: start: 20010516
  3. VIOXX [Suspect]
     Route: 065
     Dates: start: 20010725
  4. VIOXX [Suspect]
     Route: 048
     Dates: start: 20021201
  5. VIOXX [Suspect]
     Route: 048
     Dates: start: 20030801
  6. VIOXX [Suspect]
     Route: 048
     Dates: start: 20040101
  7. PREDNISONE [Concomitant]
     Route: 065
  8. METHOTREXATE [Concomitant]
     Indication: RHEUMATOID ARTHRITIS
     Route: 048
     Dates: start: 20010301, end: 20030701
  9. HYDROXYCHLOROQUINE SULFATE [Concomitant]
     Route: 065
  10. ZOLOFT [Concomitant]
     Indication: STRESS
     Route: 048
     Dates: start: 20030501
  11. ZOLOFT [Concomitant]
     Indication: IRRITABILITY
     Route: 048
     Dates: start: 20030501

REACTIONS (20)
  - ANGINA UNSTABLE [None]
  - ARTERIOSCLEROSIS CORONARY ARTERY [None]
  - ATRIAL FIBRILLATION [None]
  - CEREBROVASCULAR ACCIDENT [None]
  - CHEST PAIN [None]
  - CORONARY ARTERY DISEASE [None]
  - DRESSLER'S SYNDROME [None]
  - DYSPNOEA [None]
  - ELECTROCARDIOGRAM ABNORMAL [None]
  - GASTROOESOPHAGEAL REFLUX DISEASE [None]
  - HYPERLIPIDAEMIA [None]
  - HYPOTRICHOSIS [None]
  - INTERNATIONAL NORMALISED RATIO INCREASED [None]
  - LETHARGY [None]
  - LOBAR PNEUMONIA [None]
  - MITRAL VALVE INCOMPETENCE [None]
  - MYOCARDIAL INFARCTION [None]
  - PLEURAL EFFUSION [None]
  - ROTATOR CUFF SYNDROME [None]
  - TENDONITIS [None]
